APPROVED DRUG PRODUCT: ORENITRAM
Active Ingredient: TREPROSTINIL DIOLAMINE
Strength: EQ 0.125MG BASE
Dosage Form/Route: TABLET, EXTENDED RELEASE;ORAL
Application: N203496 | Product #001
Applicant: UNITED THERAPEUTICS CORP
Approved: Dec 20, 2013 | RLD: Yes | RS: No | Type: RX

PATENTS:
Patent 9393203 | Expires: Apr 27, 2026
Patent 8747897 | Expires: Aug 11, 2031
Patent 8747897 | Expires: Aug 11, 2031
Patent 8410169 | Expires: Feb 13, 2030
Patent 9604901 | Expires: Dec 15, 2028
Patent 8349892 | Expires: Jan 22, 2031
Patent 7417070 | Expires: Jul 30, 2026
Patent 11723887 | Expires: Dec 15, 2028
Patent 9593066 | Expires: Dec 15, 2028

EXCLUSIVITY:
Code: ODE-272 | Date: Oct 18, 2026